FAERS Safety Report 5599886-7 (Version None)
Quarter: 2008Q1

REPORT INFORMATION
  Report Type: 
  Country: None (occurrence: None)
  Receive Date: 20080117
  Receipt Date: 20080114
  Transmission Date: 20080703
  Serious: Yes (Hospitalization)
  Sender: FDA-Public Use
  Company Number: 2006SP008663

PATIENT
  Age: 73 Year
  Sex: Male
  Weight: 69 kg

DRUGS (13)
  1. TEMODAL (TEMOZOLOMIDE)  (TEMOZOMIDE) [Suspect]
     Indication: GLIOBLASTOMA MULTIFORME
     Dosage: 140 MG;QD;PO
     Route: 048
     Dates: start: 20060814, end: 20060925
  2. DILANTIN [Concomitant]
  3. PROCHLORPERAZINE [Concomitant]
  4. ZANTAC [Concomitant]
  5. BISACODYL [Concomitant]
  6. CALCIUM CARBONATE [Concomitant]
  7. CLOTRIMAZOLE [Concomitant]
  8. COLACE [Concomitant]
  9. COUMADIN [Concomitant]
  10. FLAGYL [Concomitant]
  11. TIMENTIN [Concomitant]
  12. TYLENOL [Concomitant]
  13. DEXAMETHASONE TAB [Concomitant]

REACTIONS (11)
  - CELLULITIS [None]
  - CLOSTRIDIAL INFECTION [None]
  - HISTOPLASMOSIS [None]
  - IATROGENIC INJURY [None]
  - LOWER RESPIRATORY TRACT INFECTION FUNGAL [None]
  - LUNG NEOPLASM [None]
  - OSTEOMYELITIS [None]
  - PNEUMOTHORAX [None]
  - PSEUDOMONAS INFECTION [None]
  - SEPTIC EMBOLUS [None]
  - SUBCUTANEOUS EMPHYSEMA [None]
